FAERS Safety Report 13460978 (Version 1)
Quarter: 2017Q2

REPORT INFORMATION
  Report Type: Spontaneous
  Country: US (occurrence: US)
  Receive Date: 20170419
  Receipt Date: 20170419
  Transmission Date: 20170830
  Serious: Yes (Life-Threatening, Other)
  Sender: FDA-Public Use
  Company Number: None

PATIENT
  Age: 42 Year
  Sex: Female
  Weight: 67.5 kg

DRUGS (1)
  1. LOPERAMIDE [Suspect]
     Active Substance: LOPERAMIDE
     Indication: DIARRHOEA
     Dosage: ?          QUANTITY:200 TABLET(S);OTHER FREQUENCY:MULTIPLE;?
     Route: 048
     Dates: end: 20170207

REACTIONS (9)
  - Restless legs syndrome [None]
  - Diarrhoea [None]
  - Somnolence [None]
  - Irritability [None]
  - Thinking abnormal [None]
  - Fatigue [None]
  - Miosis [None]
  - Dependence [None]
  - Disturbance in attention [None]

NARRATIVE: CASE EVENT DATE: 20170101
